FAERS Safety Report 10184250 (Version 1)
Quarter: 2014Q2

REPORT INFORMATION
  Report Type: Spontaneous
  Country: US (occurrence: US)
  Receive Date: 20140520
  Receipt Date: 20140520
  Transmission Date: 20141212
  Serious: No
  Sender: FDA-Public Use
  Company Number: US-ASTRAZENECA-2013SE62951

PATIENT
  Age: 63 Year
  Sex: Female
  Weight: 90.7 kg

DRUGS (9)
  1. RHINOCORT AQUA [Suspect]
     Indication: SINUSITIS
     Dosage: 32 MCG TWO SPRAYS IN EACH NOSTRIL ONCE DAILY
     Route: 045
     Dates: start: 201305
  2. LEVOTHYROXINE [Concomitant]
     Indication: THYROID DISORDER
     Dosage: UNKNOWN
  3. FISH OIL [Concomitant]
     Dosage: UNKNOWN
  4. LASARTAN [Concomitant]
     Indication: BLOOD PRESSURE ABNORMAL
     Dosage: UNKNOWN
  5. VALIUM [Concomitant]
     Dosage: UNKNOWN
  6. VITAMIN D [Concomitant]
     Dosage: UNKNOWN
  7. ATARAX [Concomitant]
     Indication: PRURITUS
     Dosage: UNKNOWN
  8. NAPROXEN [Concomitant]
     Indication: PAIN
     Dosage: UNKNOWN
  9. ALBUTEROL INHALER [Concomitant]
     Indication: ASTHMA

REACTIONS (9)
  - Sinusitis [Not Recovered/Not Resolved]
  - Cough [Not Recovered/Not Resolved]
  - Increased upper airway secretion [Not Recovered/Not Resolved]
  - Asthma [Not Recovered/Not Resolved]
  - Condition aggravated [Unknown]
  - Rhinorrhoea [Not Recovered/Not Resolved]
  - Intentional product misuse [Unknown]
  - Drug effect incomplete [Unknown]
  - Off label use [Unknown]
